FAERS Safety Report 7481657-8 (Version None)
Quarter: 2011Q2

REPORT INFORMATION
  Report Type: 
  Country: None (occurrence: None)
  Receive Date: 20110516
  Receipt Date: 20110503
  Transmission Date: 20111010
  Serious: Yes (Hospitalization, Other)
  Sender: FDA-Public Use
  Company Number: US-ELI_LILLY_AND_COMPANY-US201105002281

PATIENT
  Age: 28 Year
  Sex: Female

DRUGS (2)
  1. ZYPREXA ZYDIS [Suspect]
     Dosage: 20 MG, PRN
     Route: 048
     Dates: start: 20110401, end: 20110401
  2. TRAZODONE HCL [Concomitant]
     Dosage: 50 MG, QD
     Dates: start: 20110401

REACTIONS (4)
  - DYSPNOEA [None]
  - NAUSEA [None]
  - HOSPITALISATION [None]
  - SWOLLEN TONGUE [None]
